FAERS Safety Report 5734697-0 (Version None)
Quarter: 2008Q2

REPORT INFORMATION
  Report Type: 
  Country: None (occurrence: None)
  Receive Date: 20080512
  Receipt Date: 20080501
  Transmission Date: 20081010
  Serious: Yes (Hospitalization, Other)
  Sender: FDA-Public Use
  Company Number: US-JNJFOC-20080500871

PATIENT
  Sex: Female
  Weight: 58.97 kg

DRUGS (2)
  1. TYLENOL W/ CODEINE [Suspect]
     Indication: BACK PAIN
     Route: 048
  2. AMITRIPTLINE HCL [Concomitant]
     Indication: SLEEP DISORDER
     Route: 048

REACTIONS (10)
  - ABDOMINAL PAIN UPPER [None]
  - ANXIETY [None]
  - CHOLELITHIASIS [None]
  - DEPRESSION [None]
  - ECZEMA [None]
  - MALAISE [None]
  - NAUSEA [None]
  - OEDEMA PERIPHERAL [None]
  - RHEUMATOID ARTHRITIS [None]
  - VOMITING [None]
